FAERS Safety Report 22009093 (Version 2)
Quarter: 2023Q1

REPORT INFORMATION
  Report Type: Spontaneous
  Country: US (occurrence: US)
  Receive Date: 20230220
  Receipt Date: 20230307
  Transmission Date: 20230417
  Serious: No
  Sender: FDA-Public Use
  Company Number: US-MTPC-MTDA2023-0004488

PATIENT

DRUGS (5)
  1. RADICAVA [Suspect]
     Active Substance: EDARAVONE
     Indication: Amyotrophic lateral sclerosis
     Dosage: STANDARD DOSE, 10 OUT OF 14 DAYS, 14 DAYS OFF
     Route: 048
     Dates: start: 20220912, end: 20221108
  2. RADICAVA [Suspect]
     Active Substance: EDARAVONE
     Indication: Amyotrophic lateral sclerosis
     Dosage: STANDARD DOSE, 10 OUT OF 14 DAYS, 14 DAYS OFF
     Route: 048
     Dates: start: 20220912, end: 20221108
  3. QUETIAPINE [Concomitant]
     Active Substance: QUETIAPINE
     Indication: Insomnia
     Dosage: 125 MILLIGRAM, QD
     Route: 065
  4. PROZAC [Concomitant]
     Active Substance: FLUOXETINE HYDROCHLORIDE
     Indication: Product used for unknown indication
     Dosage: 20 MILLIGRAM, QD
     Route: 048
  5. RILUZOLE [Concomitant]
     Active Substance: RILUZOLE
     Indication: Product used for unknown indication
     Dosage: 50 MILLIGRAM, BID
     Route: 048

REACTIONS (2)
  - Disease progression [Not Recovered/Not Resolved]
  - Asthenia [Not Recovered/Not Resolved]
